FAERS Safety Report 8735547 (Version 2)
Quarter: 2012Q4

REPORT INFORMATION
  Report Type: 
  Country: CA (occurrence: CA)
  Receive Date: 20120822
  Receipt Date: 20120911
  Transmission Date: 20130627
  Serious: Yes (Death)
  Sender: FDA-Public Use
  Company Number: PHHY2012CA072054

PATIENT
  Age: 79 Year
  Sex: Female

DRUGS (9)
  1. SANDOSTATIN LAR [Suspect]
     Indication: DIARRHOEA
     Dosage: 20 mg every 4 weeks
     Route: 030
     Dates: start: 20120330
  2. GEMCITABINE [Concomitant]
     Dosage: UNK UKN, UNK
     Route: 042
     Dates: start: 20120326
  3. HYDROMORPHONE [Concomitant]
     Dosage: 1 mg/l, UNK
  4. FENTANYL [Concomitant]
     Dosage: UNK UKN, UNK
  5. LORAZEPAM [Concomitant]
     Dosage: UNK UKN, UNK
  6. OXYGEN [Concomitant]
     Dosage: UNK UKN, UNK
  7. LOMOTIL [Concomitant]
     Dosage: UNK UKN, UNK
  8. CREON [Concomitant]
  9. SANDOSTATIN [Concomitant]
     Dosage: UNK UKN, UNK

REACTIONS (6)
  - Death [Fatal]
  - Dyspnoea [Unknown]
  - Oedema peripheral [Unknown]
  - Insomnia [Unknown]
  - Suffocation feeling [Unknown]
  - Dysphagia [Unknown]
